FAERS Safety Report 20043881 (Version 1)
Quarter: 2021Q4

REPORT INFORMATION
  Report Type: Spontaneous
  Country: NL (occurrence: NL)
  Receive Date: 20211108
  Receipt Date: 20211108
  Transmission Date: 20220303
  Serious: Yes (Other)
  Sender: FDA-Public Use
  Company Number: NL-OTSUKA-2020_004883

PATIENT
  Age: 6 Decade
  Sex: Male

DRUGS (4)
  1. BREXPIPRAZOLE [Suspect]
     Active Substance: BREXPIPRAZOLE
     Indication: Schizophrenia
     Dosage: 4 MG, UNK (FOR 2 WEEKS)
     Route: 065
  2. BREXPIPRAZOLE [Suspect]
     Active Substance: BREXPIPRAZOLE
     Dosage: UNK
     Route: 065
  3. BREXPIPRAZOLE [Suspect]
     Active Substance: BREXPIPRAZOLE
     Dosage: 2 MG, UNK (FOR 2 WEEKS)
     Route: 065
  4. BREXPIPRAZOLE [Suspect]
     Active Substance: BREXPIPRAZOLE
     Dosage: 3 MG, UNK
     Route: 065

REACTIONS (6)
  - Hallucination, visual [Recovered/Resolved]
  - Speech disorder [Recovered/Resolved]
  - Muscular weakness [Recovered/Resolved]
  - Gait disturbance [Recovered/Resolved]
  - Sedation [Recovered/Resolved]
  - Somnolence [Recovered/Resolved]
